FAERS Safety Report 17729105 (Version 1)
Quarter: 2020Q2

REPORT INFORMATION
  Report Type: Spontaneous
  Country: US (occurrence: US)
  Receive Date: 20200429
  Receipt Date: 20200429
  Transmission Date: 20200714
  Serious: Yes (Other)
  Sender: FDA-Public Use
  Company Number: None

PATIENT
  Age: 42 Year
  Sex: Female
  Weight: 111.58 kg

DRUGS (1)
  1. SUBOXONE [Suspect]
     Active Substance: BUPRENORPHINE HYDROCHLORIDE\NALOXONE HYDROCHLORIDE
     Indication: DRUG USE DISORDER
     Dosage: ?   OTHER DOSE:8-2MG;?
     Route: 060
     Dates: start: 20191206, end: 20200427

REACTIONS (2)
  - Oedema peripheral [None]
  - Pain [None]

NARRATIVE: CASE EVENT DATE: 20200310
